FAERS Safety Report 20211602 (Version 1)
Quarter: 2021Q4

REPORT INFORMATION
  Report Type: Spontaneous
  Country: US (occurrence: None)
  Receive Date: 20211220
  Receipt Date: 20211220
  Transmission Date: 20220303
  Serious: Yes (Other)
  Sender: FDA-Public Use
  Company Number: None

PATIENT
  Age: 34 Year
  Sex: Female

DRUGS (1)
  1. SAPROPTERIN [Suspect]
     Active Substance: SAPROPTERIN
     Dosage: FREQUENCY : DAILY;?
     Route: 048
     Dates: start: 202003, end: 20211206

REACTIONS (5)
  - Productive cough [None]
  - Abdominal discomfort [None]
  - Abdominal pain [None]
  - Haematochezia [None]
  - Nausea [None]

NARRATIVE: CASE EVENT DATE: 20211029
